FAERS Safety Report 6309600-5 (Version None)
Quarter: 2009Q3

REPORT INFORMATION
  Report Type: 
  Country: None (occurrence: None)
  Receive Date: 20090814
  Receipt Date: 20090812
  Transmission Date: 20100115
  Serious: Yes (Death, Life-Threatening, Hospitalization, Other)
  Sender: FDA-Public Use
  Company Number: JP-BRISTOL-MYERS SQUIBB COMPANY-14565055

PATIENT
  Age: 54 Year
  Sex: Male

DRUGS (13)
  1. SPRYCEL [Suspect]
     Indication: CHRONIC MYELOID LEUKAEMIA
     Dosage: 4FEB-3MAR,28D;16-26MAR09(11D).INTER ON27MAR09,RESTA ON31MAR9-UNK.READ:7JUN-30JUL09(54D),DIS:30JUL09
     Route: 048
     Dates: start: 20090204, end: 20090730
  2. ENDOXAN [Suspect]
     Indication: CHRONIC MYELOID LEUKAEMIA
     Route: 042
     Dates: start: 20080223, end: 20080223
  3. ONCOVIN [Suspect]
     Indication: CHRONIC MYELOID LEUKAEMIA
     Dosage: THERAPY DATES: 02MAR09,09MAR09,16MAR09
     Route: 042
     Dates: start: 20090223, end: 20090316
  4. DAUNOMYCIN [Suspect]
     Indication: CHRONIC MYELOID LEUKAEMIA
     Route: 042
     Dates: start: 20090223, end: 20090225
  5. CEFEPIME [Concomitant]
     Dates: start: 20090304, end: 20090306
  6. IMATINIB MESILATE [Concomitant]
     Dosage: 28MAY02-05NOV07, 07OCT08-04FEB09
     Dates: start: 20020528
  7. DECADRON [Concomitant]
     Route: 048
     Dates: start: 20090204, end: 20090217
  8. PREDONINE [Concomitant]
     Route: 048
     Dates: start: 20090218, end: 20090219
  9. NEUPOGEN [Concomitant]
     Dates: start: 20090304, end: 20090310
  10. LASIX [Concomitant]
     Route: 048
     Dates: start: 20090117
  11. VANCOMYCIN HCL [Concomitant]
     Dates: start: 20090306, end: 20090310
  12. IMMUNE GLOBULIN INTRAVENOUS (HUMAN) [Concomitant]
  13. ACYCLOVIR [Concomitant]

REACTIONS (9)
  - ALANINE AMINOTRANSFERASE INCREASED [None]
  - CARDIAC FAILURE [None]
  - DEATH [None]
  - INTERSTITIAL LUNG DISEASE [None]
  - PLATELET COUNT DECREASED [None]
  - PNEUMONIA [None]
  - PYREXIA [None]
  - SEPSIS [None]
  - WHITE BLOOD CELL COUNT DECREASED [None]
